FAERS Safety Report 5618487-5 (Version None)
Quarter: 2008Q1

REPORT INFORMATION
  Report Type: 
  Country: None (occurrence: None)
  Receive Date: 20080207
  Receipt Date: 20080131
  Transmission Date: 20080703
  Serious: Yes (Congenital Anomaly)
  Sender: FDA-Public Use
  Company Number: B0505958A

PATIENT
  Sex: Female
  Weight: 3.16 kg

DRUGS (3)
  1. LAMICTAL [Suspect]
     Indication: EPILEPSY
     Dosage: 200MG PER DAY
  2. FOLIC ACID [Concomitant]
     Dosage: 5MG PER DAY
  3. VITAMIN K [Concomitant]

REACTIONS (3)
  - ANAL ATRESIA [None]
  - POLYDACTYLY [None]
  - RENAL DYSPLASIA [None]
